FAERS Safety Report 20877455 (Version 2)
Quarter: 2022Q2

REPORT INFORMATION
  Report Type: Report from Study
  Country: US (occurrence: US)
  Receive Date: 20220526
  Receipt Date: 20220527
  Transmission Date: 20220721
  Serious: No
  Sender: FDA-Public Use
  Company Number: US-BRISTOL-MYERS SQUIBB COMPANY-2022-033607

PATIENT
  Age: 76 Year
  Sex: Male
  Weight: 108.8 kg

DRUGS (2)
  1. REVLIMID [Suspect]
     Active Substance: LENALIDOMIDE
     Indication: Plasma cell myeloma
     Dosage: DAILY 14 DAYS
     Route: 048
     Dates: start: 20191015
  2. REVLIMID [Suspect]
     Active Substance: LENALIDOMIDE
     Indication: Illness
     Route: 048
     Dates: start: 20191015

REACTIONS (3)
  - Hypersensitivity [Unknown]
  - Full blood count abnormal [Unknown]
  - Diarrhoea [Unknown]
